FAERS Safety Report 6878531-4 (Version None)
Quarter: 2010Q3

REPORT INFORMATION
  Report Type: 
  Country: None (occurrence: None)
  Receive Date: 20100728
  Receipt Date: 20100716
  Transmission Date: 20110219
  Serious: Yes (Hospitalization)
  Sender: FDA-Public Use
  Company Number: DE-PFIZER INC-2010082123

PATIENT
  Age: 72 Year
  Sex: Male

DRUGS (10)
  1. SUNITINIB MALATE [Suspect]
     Indication: METASTATIC RENAL CELL CARCINOMA
     Dosage: 50 MG, 1X/DAY
     Dates: start: 20100109
  2. SORAFENIB [Suspect]
     Dosage: 800 MG, UNK
     Dates: start: 20100109, end: 20100406
  3. BISOPROLOL [Concomitant]
     Dosage: 5 MG, UNK
     Dates: end: 20100629
  4. BENAZEPRIL HYDROCHLORIDE [Concomitant]
     Dosage: 40 MG, UNK
  5. COSOPT [Concomitant]
     Dosage: UNK
  6. TRAVATAN [Concomitant]
     Dosage: UNK
  7. PANTOZOL [Concomitant]
     Dosage: 80 MG, UNK
  8. DOXAZOSIN [Concomitant]
     Dosage: 1 MG, UNK
  9. HYDROCHLOROTHIAZIDE [Concomitant]
     Dosage: 12.5 MG, UNK
  10. MAGNETRANS FORTE [Concomitant]
     Dosage: 2X/DAY

REACTIONS (1)
  - CIRCULATORY COLLAPSE [None]
